FAERS Safety Report 20570797 (Version 1)
Quarter: 2022Q1

REPORT INFORMATION
  Report Type: Report from Study
  Country: JP (occurrence: JP)
  Receive Date: 20220309
  Receipt Date: 20220309
  Transmission Date: 20220424
  Serious: Yes (Hospitalization, Other)
  Sender: FDA-Public Use
  Company Number: JP-DSJP-DSJ-2022-100507

PATIENT

DRUGS (18)
  1. BEVACIZUMAB [Suspect]
     Active Substance: BEVACIZUMAB
     Indication: Breast cancer
     Dosage: UNK
     Route: 065
  2. DENOSUMAB [Suspect]
     Active Substance: DENOSUMAB
     Indication: Product used for unknown indication
     Dosage: 120 MILLIGRAM, AS NECESSARY (AS NEEDED)
     Route: 050
  3. MIROGABALIN [Suspect]
     Active Substance: MIROGABALIN
     Indication: Product used for unknown indication
     Dosage: UNK
     Route: 065
  4. IOPAMIDOL [Suspect]
     Active Substance: IOPAMIDOL
     Indication: Computerised tomogram
     Dosage: 100 MILLILITER
     Route: 050
     Dates: start: 20220105, end: 20220105
  5. PACLITAXEL [Suspect]
     Active Substance: PACLITAXEL
     Indication: Breast cancer
     Dosage: 140 MILLIGRAM
     Route: 065
     Dates: start: 20211027
  6. PACLITAXEL [Suspect]
     Active Substance: PACLITAXEL
     Dosage: 140 MILLIGRAM
     Route: 065
     Dates: start: 20211102
  7. PACLITAXEL [Suspect]
     Active Substance: PACLITAXEL
     Dosage: 100 MILLIGRAM
     Route: 065
     Dates: start: 20211124
  8. PACLITAXEL [Suspect]
     Active Substance: PACLITAXEL
     Dosage: 100 MILLIGRAM
     Route: 065
     Dates: start: 20211208
  9. PACLITAXEL [Suspect]
     Active Substance: PACLITAXEL
     Dosage: 100 MILLIGRAM
     Route: 065
     Dates: start: 20211222
  10. PACLITAXEL [Suspect]
     Active Substance: PACLITAXEL
     Dosage: 100 MILLIGRAM
     Route: 065
     Dates: start: 20220119
  11. CALCIUM CARBONATE\CHOLECALCIFEROL\MAGNESIUM CARBONATE [Concomitant]
     Active Substance: CALCIUM CARBONATE\CHOLECALCIFEROL\MAGNESIUM CARBONATE
     Dosage: 2 DOSAGE FORM, QD
     Route: 048
  12. METOCLOPRAMIDE [Concomitant]
     Active Substance: METOCLOPRAMIDE
     Indication: Nausea
     Dosage: 5 MILLIGRAM, AS NECESSARY (AS NEEDED)
     Route: 048
  13. DEXAMETHASONE SODIUM PHOSPHATE [Concomitant]
     Active Substance: DEXAMETHASONE SODIUM PHOSPHATE
     Dosage: 6.6 MILLIGRAM, AT THE TIME OF ADMINISTRATION OF ANTICANCER DRUG
     Route: 050
     Dates: start: 20211027
  14. GASTER [Concomitant]
     Active Substance: FAMOTIDINE
     Dosage: 20 MILLIGRAM, AT THE TIME OF ADMINISTRATION OF ANTICANCER DRUG
     Route: 050
     Dates: start: 20211027
  15. POLARAMINE [Concomitant]
     Active Substance: DEXCHLORPHENIRAMINE MALEATE
     Dosage: 5 MILLIGRAM, AT THE TIME OF ADMINISTRATION OF ANTICANCER DRUG
     Route: 050
     Dates: start: 20211027
  16. CLOBETASOL [Concomitant]
     Active Substance: CLOBETASOL
     Dosage: UNK
     Route: 050
     Dates: start: 20211222
  17. SODIUM GUALENATE MONOHYDRATE [Concomitant]
     Active Substance: SODIUM GUALENATE MONOHYDRATE
     Dosage: UNK UNK, AS NECESSARY (AS NEEDED)
     Route: 050
     Dates: start: 20211109, end: 20211112
  18. SODIUM GUALENATE MONOHYDRATE [Concomitant]
     Active Substance: SODIUM GUALENATE MONOHYDRATE
     Dosage: UNK UNK, AS NECESSARY (AS NEEDED)
     Route: 050
     Dates: start: 20211113

REACTIONS (11)
  - Hypothyroidism [Not Recovered/Not Resolved]
  - Anaphylactic reaction [Recovered/Resolved]
  - Malaise [Recovered/Resolved]
  - Alanine aminotransferase increased [Recovered/Resolved]
  - Aspartate aminotransferase increased [Recovered/Resolved]
  - Taste disorder [Recovered/Resolved]
  - Pyrexia [Recovered/Resolved]
  - Arthralgia [Recovered/Resolved]
  - Stomatitis [Recovered/Resolved]
  - Neutrophil count decreased [Recovered/Resolved]
  - Peripheral sensory neuropathy [Not Recovered/Not Resolved]

NARRATIVE: CASE EVENT DATE: 20211028
